FAERS Safety Report 7267421-3 (Version None)
Quarter: 2011Q1

REPORT INFORMATION
  Report Type: 
  Country: None (occurrence: None)
  Receive Date: 20110201
  Receipt Date: 20110124
  Transmission Date: 20110831
  Serious: Yes (Death)
  Sender: FDA-Public Use
  Company Number: MX-SANOFI-AVENTIS-2011SA004798

PATIENT
  Age: 50 Year
  Sex: Male

DRUGS (4)
  1. LOSARTAN POTASSIUM [Concomitant]
     Route: 048
     Dates: end: 20101223
  2. LANTUS [Suspect]
     Indication: TYPE 2 DIABETES MELLITUS
     Dates: start: 20060101, end: 20101223
  3. AMLODIPINE [Concomitant]
     Route: 048
     Dates: end: 20101223
  4. CHLORTHALIDONE [Concomitant]
     Route: 048
     Dates: end: 20101223

REACTIONS (2)
  - HYPERTENSIVE CRISIS [None]
  - ACUTE MYOCARDIAL INFARCTION [None]
